FAERS Safety Report 6866732-0 (Version None)
Quarter: 2010Q3

REPORT INFORMATION
  Report Type: 
  Country: None (occurrence: None)
  Receive Date: 20100722
  Receipt Date: 20100708
  Transmission Date: 20110219
  Serious: Yes (Other)
  Sender: FDA-Public Use
  Company Number: PHHY2010DE45366

PATIENT
  Age: 33 Year
  Sex: Female

DRUGS (3)
  1. CLOFAZIMINE [Suspect]
     Indication: LEPROSY
  2. RIFAMPICIN [Suspect]
     Indication: LEPROSY
  3. DAPSONE [Suspect]
     Indication: LEPROSY

REACTIONS (8)
  - ARTHRALGIA [None]
  - DRUG EXPOSURE DURING PREGNANCY [None]
  - FATIGUE [None]
  - HAEMORRHAGE [None]
  - JOINT SWELLING [None]
  - NODULE [None]
  - PAIN [None]
  - TYPE 2 LEPRA REACTION [None]
